FAERS Safety Report 6440571-7 (Version None)
Quarter: 2009Q4

REPORT INFORMATION
  Report Type: 
  Country: None (occurrence: None)
  Receive Date: 20091113
  Receipt Date: 20091103
  Transmission Date: 20100525
  Serious: Yes (Hospitalization)
  Sender: FDA-Public Use
  Company Number: US-ELI_LILLY_AND_COMPANY-US200911002856

PATIENT
  Age: 80 Year
  Sex: Female

DRUGS (1)
  1. FORTEO [Suspect]
     Dates: start: 20090501

REACTIONS (4)
  - AMNESIA [None]
  - CARDIAC STRESS TEST ABNORMAL [None]
  - INJECTION SITE ERYTHEMA [None]
  - TRANSIENT ISCHAEMIC ATTACK [None]
